FAERS Safety Report 8422728-9 (Version None)
Quarter: 2012Q2

REPORT INFORMATION
  Report Type: 
  Country: None (occurrence: None)
  Receive Date: 20120525
  Receipt Date: 20120514
  Transmission Date: 20120825
  Serious: Yes (Other)
  Sender: FDA-Public Use
  Company Number: 2012PROUSA01417

PATIENT
  Age: 72 Year
  Sex: Male
  Weight: 84.4 kg

DRUGS (21)
  1. UNISOM (DIPHENHYDRAMINE HYDROCHLORIDE) [Concomitant]
  2. BENAZEPRIL HYDROCHLORIDE [Concomitant]
  3. PROVENGE [Suspect]
     Indication: PROSTATE CANCER METASTATIC
     Dosage: 250 ML, SINGLE, INTRAVENOUS
     Route: 042
     Dates: start: 20111223, end: 20111223
  4. PREDNISONE TAB [Concomitant]
  5. CYMBALTA [Concomitant]
  6. HYDROXYZINE HYDROCHLORIDE [Concomitant]
  7. IBUPROFEN [Concomitant]
  8. PRILOSEC [Concomitant]
  9. PROVENGE [Suspect]
     Indication: PROSTATE CANCER METASTATIC
     Dosage: 250 ML, SINGLE, INTRAVENOUS
     Route: 042
     Dates: start: 20120106, end: 20120106
  10. FISH OIL [Concomitant]
  11. PROVENGE [Suspect]
     Indication: PROSTATE CANCER METASTATIC
     Dosage: 250 ML, SINGLE, INTRAVENOUS
     Route: 042
     Dates: start: 20120127, end: 20120127
  12. EXTRA STRENGTH TYLENOL [Concomitant]
  13. ASCORBIC ACID [Concomitant]
  14. GLUCOSAMINE CHONDROITIN (CHONDROITIN SULFATE, GLUCOSAMINE) [Concomitant]
  15. BISMUTH SUBSALICYLATE [Concomitant]
  16. AEROBID (FLUINISOLIDE) [Concomitant]
  17. ABIRATERONE [Concomitant]
  18. TRAMADOL HCL [Concomitant]
  19. AMLODIPINE BESYLATE [Concomitant]
  20. CALCIUM PLUS D3 (CALCIUM, COLECALCIFEROL) [Concomitant]
  21. DENOSUMAB [Concomitant]

REACTIONS (8)
  - DISEASE PROGRESSION [None]
  - LYMPHOEDEMA [None]
  - GAIT DISTURBANCE [None]
  - HEADACHE [None]
  - HYPOAESTHESIA [None]
  - HAEMORRHAGIC STROKE [None]
  - VISUAL IMPAIRMENT [None]
  - ACETABULUM FRACTURE [None]
